FAERS Safety Report 11669202 (Version 6)
Quarter: 2016Q2

REPORT INFORMATION
  Report Type: Spontaneous
  Country: US (occurrence: US)
  Receive Date: 20151027
  Receipt Date: 20160609
  Transmission Date: 20160815
  Serious: Yes (Hospitalization)
  Sender: FDA-Public Use
  Company Number: US-ACTELION PHARMACEUTICALS US, INC.-A-NJ2015-126147

PATIENT
  Age: 2 Year
  Sex: Male

DRUGS (6)
  1. TRACLEER [Suspect]
     Active Substance: BOSENTAN
     Dosage: 15.625 MG, BID
     Route: 048
     Dates: start: 201502
  2. REVATIO [Concomitant]
     Active Substance: SILDENAFIL CITRATE
  3. ASPIRIN. [Concomitant]
     Active Substance: ASPIRIN
     Dosage: 40.5 MG, QD
     Dates: start: 201403
  4. VITAMIN D [Concomitant]
     Active Substance: CHOLECALCIFEROL
     Dosage: 400 U, QD
     Dates: start: 201403
  5. REMODULIN [Suspect]
     Active Substance: TREPROSTINIL
     Indication: PULMONARY HYPERTENSION
     Dosage: 0.134 NG/KG, PER MIN
     Route: 055
     Dates: start: 201502
  6. TRACLEER [Suspect]
     Active Substance: BOSENTAN
     Indication: PULMONARY ARTERIAL HYPERTENSION
     Dosage: 31.25 MG, BID
     Route: 048
     Dates: start: 20140611

REACTIONS (20)
  - Catheter site infection [Recovering/Resolving]
  - Abnormal behaviour [Unknown]
  - Malaise [Unknown]
  - Irritability [Unknown]
  - Skin reaction [Recovering/Resolving]
  - Heart rate increased [Unknown]
  - Catheter site swelling [Unknown]
  - Flushing [Unknown]
  - Erythema [Unknown]
  - Oxygen consumption increased [Recovering/Resolving]
  - Condition aggravated [Unknown]
  - Respiratory syncytial virus infection [Recovering/Resolving]
  - Device occlusion [Unknown]
  - Infusion site reaction [Unknown]
  - Cough [Recovering/Resolving]
  - Catheter site erythema [Unknown]
  - Pain [Unknown]
  - Staphylococcal infection [Recovering/Resolving]
  - Device leakage [Unknown]
  - Pyrexia [Recovering/Resolving]

NARRATIVE: CASE EVENT DATE: 20160214
